FAERS Safety Report 20946451 (Version 1)
Quarter: 2022Q2

REPORT INFORMATION
  Report Type: Spontaneous
  Country: US (occurrence: None)
  Receive Date: 20220610
  Receipt Date: 20220610
  Transmission Date: 20220721
  Serious: Yes (Hospitalization)
  Sender: FDA-Public Use
  Company Number: None

PATIENT
  Age: 63 Year
  Sex: Female
  Weight: 99.34 kg

DRUGS (18)
  1. TAFINLAR [Suspect]
     Active Substance: DABRAFENIB MESYLATE
     Indication: Malignant melanoma
     Dosage: FREQUENCY : DAILY;?
     Route: 048
     Dates: start: 20210806
  2. MEKINIST [Suspect]
     Active Substance: TRAMETINIB DIMETHYL SULFOXIDE
     Indication: Malignant melanoma
     Dosage: OTHER FREQUENCY : Q12HOURS;?
     Route: 048
     Dates: start: 20210806
  3. ALPRAZOLAM [Concomitant]
  4. AMLODIPINE [Concomitant]
  5. VITAMIN B12 [Concomitant]
     Active Substance: CYANOCOBALAMIN
  6. BIOTIN [Concomitant]
  7. FLUOXETINE [Concomitant]
  8. FUROSEMIDE [Concomitant]
  9. GABAPENTIN [Concomitant]
  10. HYDROXYZINE [Concomitant]
  11. LACTULOSE [Concomitant]
  12. MELOXICAM [Concomitant]
  13. MULTIVITAMIN [Concomitant]
  14. TRAMADOL [Concomitant]
  15. TYLENOL [Concomitant]
  16. VITAMIN C [Concomitant]
  17. YEAST EXTRACT [Concomitant]
  18. ZINC [Concomitant]

REACTIONS (6)
  - Pyrexia [None]
  - Hypoaesthesia [None]
  - Hypoaesthesia [None]
  - Rectal haemorrhage [None]
  - Dyspnoea [None]
  - Asthenia [None]
